FAERS Safety Report 18395883 (Version 1)
Quarter: 2020Q4

REPORT INFORMATION
  Report Type: Spontaneous
  Country: US (occurrence: US)
  Receive Date: 20201018
  Receipt Date: 20201018
  Transmission Date: 20210114
  Serious: Yes (Other)
  Sender: FDA-Public Use
  Company Number: US-BIOGEN-2020BI00935673

PATIENT
  Sex: Female

DRUGS (1)
  1. TECFIDERA [Suspect]
     Active Substance: DIMETHYL FUMARATE
     Indication: MULTIPLE SCLEROSIS
     Route: 065
     Dates: start: 20170213, end: 20200504

REACTIONS (7)
  - Shock [Unknown]
  - Impaired self-care [Unknown]
  - Gastric disorder [Recovered/Resolved]
  - Urinary incontinence [Unknown]
  - Mobility decreased [Unknown]
  - Discomfort [Unknown]
  - Stress [Unknown]
